FAERS Safety Report 25500144 (Version 1)
Quarter: 2025Q3

REPORT INFORMATION
  Report Type: Spontaneous
  Country: US (occurrence: None)
  Receive Date: 20250701
  Receipt Date: 20250701
  Transmission Date: 20251021
  Serious: Yes (Hospitalization, Other)
  Sender: FDA-CTU
  Company Number: None

PATIENT
  Age: 24 Year
  Sex: Female
  Weight: 55.35 kg

DRUGS (3)
  1. QULIPTA [Suspect]
     Active Substance: ATOGEPANT
     Dates: start: 20250604, end: 20250616
  2. CONCERTA [Concomitant]
     Active Substance: METHYLPHENIDATE HYDROCHLORIDE
  3. LEVOTHYROXINE [Concomitant]
     Active Substance: LEVOTHYROXINE

REACTIONS (9)
  - Drug withdrawal syndrome [None]
  - Tremor [None]
  - Dysstasia [None]
  - Tachycardia [None]
  - Dizziness [None]
  - Dyspnoea [None]
  - Migraine [None]
  - Product use complaint [None]
  - Drug dose titration not performed [None]

NARRATIVE: CASE EVENT DATE: 20250619
